FAERS Safety Report 12842763 (Version 1)
Quarter: 2016Q4

REPORT INFORMATION
  Report Type: Spontaneous
  Country: US (occurrence: US)
  Receive Date: 20161013
  Receipt Date: 20161013
  Transmission Date: 20170207
  Serious: No
  Sender: FDA-Public Use
  Company Number: US-PFIZER INC-2016475872

PATIENT
  Age: 31 Year
  Sex: Female

DRUGS (1)
  1. EFFEXOR [Suspect]
     Active Substance: VENLAFAXINE HYDROCHLORIDE
     Dosage: 225 MG, UNK

REACTIONS (5)
  - Negative thoughts [Unknown]
  - Nausea [Unknown]
  - Vomiting [Unknown]
  - Feeling abnormal [Unknown]
  - Withdrawal syndrome [Unknown]
